FAERS Safety Report 16792878 (Version 1)
Quarter: 2019Q3

REPORT INFORMATION
  Report Type: Report from Study
  Country: None (occurrence: CA)
  Receive Date: 20190910
  Receipt Date: 20190910
  Transmission Date: 20191005
  Serious: Yes (Hospitalization)
  Sender: FDA-Public Use
  Company Number: CA-ABBVIE-19K-028-2914870-00

PATIENT
  Sex: Female

DRUGS (1)
  1. HUMIRA [Suspect]
     Active Substance: ADALIMUMAB
     Indication: RHEUMATOID ARTHRITIS
     Route: 058
     Dates: start: 20190529

REACTIONS (9)
  - Eosinophil count increased [Not Recovered/Not Resolved]
  - Back pain [Not Recovered/Not Resolved]
  - Injection site induration [Unknown]
  - Injection site pain [Unknown]
  - Rheumatoid arthritis [Not Recovered/Not Resolved]
  - Eructation [Not Recovered/Not Resolved]
  - Insomnia [Unknown]
  - Vomiting [Not Recovered/Not Resolved]
  - Scleral oedema [Recovered/Resolved]

NARRATIVE: CASE EVENT DATE: 2019
